FAERS Safety Report 6362144-7 (Version None)
Quarter: 2009Q3

REPORT INFORMATION
  Report Type: 
  Country: None (occurrence: None)
  Receive Date: 20090918
  Receipt Date: 20090908
  Transmission Date: 20100115
  Serious: Yes (Death, Hospitalization)
  Sender: FDA-Public Use
  Company Number: NL-GENENTECH-247366

PATIENT
  Sex: Male

DRUGS (8)
  1. BEVACIZUMAB [Suspect]
     Indication: COLORECTAL CANCER
     Dosage: 560 MG, Q3W
     Route: 042
     Dates: start: 20061020
  2. CAPECITABINE [Suspect]
     Indication: COLORECTAL CANCER
     Dosage: 2000 MG, BID
     Route: 048
     Dates: start: 20061020, end: 20061119
  3. OXALIPLATIN [Suspect]
     Indication: COLORECTAL CANCER
     Dosage: 250 MG, Q3W
     Route: 042
     Dates: start: 20061020
  4. CETUXIMAB [Suspect]
     Indication: COLORECTAL CANCER
     Dosage: 400 MG/KG, UNK
     Route: 042
     Dates: start: 20061020
  5. CETUXIMAB [Suspect]
     Dosage: 480 MG, DAYS1,8,15
     Dates: start: 20061020, end: 20071117
  6. ASCAL [Concomitant]
     Indication: DRUG USE FOR UNKNOWN INDICATION
  7. SELEKTINE [Concomitant]
     Indication: DRUG USE FOR UNKNOWN INDICATION
  8. FOSINOPRIL SODIUM [Concomitant]
     Indication: DRUG USE FOR UNKNOWN INDICATION

REACTIONS (7)
  - DEATH [None]
  - DIARRHOEA [None]
  - HAEMOTHORAX [None]
  - METABOLIC ACIDOSIS [None]
  - PNEUMOTHORAX [None]
  - PULMONARY EMBOLISM [None]
  - RENAL FAILURE [None]
